FAERS Safety Report 17369350 (Version 1)
Quarter: 2020Q1

REPORT INFORMATION
  Report Type: Spontaneous
  Country: US (occurrence: US)
  Receive Date: 20200121
  Receipt Date: 20200121
  Transmission Date: 20200409
  Serious: No
  Sender: FDA-Public Use
  Company Number: None

PATIENT

DRUGS (3)
  1. VERAPAMIL HCL [Suspect]
     Active Substance: VERAPAMIL HYDROCHLORIDE
  2. NALOXONE HCL [Suspect]
     Active Substance: NALOXONE HYDROCHLORIDE
  3. GLYCOPYRROLATE. [Suspect]
     Active Substance: GLYCOPYRROLATE

REACTIONS (3)
  - Product label confusion [None]
  - Product storage error [None]
  - Product appearance confusion [None]
